FAERS Safety Report 23357769 (Version 6)
Quarter: 2024Q4

REPORT INFORMATION
  Report Type: Report from Study
  Country: JP (occurrence: JP)
  Receive Date: 20240102
  Receipt Date: 20241230
  Transmission Date: 20250114
  Serious: Yes (Hospitalization)
  Sender: MERCK
  Company Number: JP-MSD-2312JPN001861J

PATIENT
  Age: 79 Year
  Sex: Female
  Weight: 45.1 kg

DRUGS (10)
  1. PEMBROLIZUMAB [Suspect]
     Active Substance: PEMBROLIZUMAB
     Indication: Uterine cancer
     Dosage: 200 MILLIGRAM, Q3W
     Route: 065
     Dates: start: 20231206, end: 20231227
  2. PEMBROLIZUMAB [Suspect]
     Active Substance: PEMBROLIZUMAB
     Dosage: 200 MILLIGRAM
     Route: 065
     Dates: start: 20240122, end: 20240122
  3. PEMBROLIZUMAB [Suspect]
     Active Substance: PEMBROLIZUMAB
     Dosage: 200 MILLIGRAM, Q3W
     Route: 065
     Dates: start: 20240219, end: 20240311
  4. PEMBROLIZUMAB [Suspect]
     Active Substance: PEMBROLIZUMAB
     Dosage: 200 MILLIGRAM
     Route: 065
     Dates: start: 20240408, end: 20240408
  5. PEMBROLIZUMAB [Suspect]
     Active Substance: PEMBROLIZUMAB
     Dosage: 200 MILLIGRAM
     Route: 065
     Dates: start: 20240501, end: 20240501
  6. PEMBROLIZUMAB [Suspect]
     Active Substance: PEMBROLIZUMAB
     Dosage: 200 MILLIGRAM
     Route: 065
     Dates: start: 20240527
  7. LENVATINIB MESYLATE [Suspect]
     Active Substance: LENVATINIB MESYLATE
     Indication: Uterine cancer
     Dosage: 20 MILLIGRAM, QD
     Route: 048
     Dates: start: 20231206, end: 20231220
  8. LENVATINIB MESYLATE [Suspect]
     Active Substance: LENVATINIB MESYLATE
     Dosage: 14 MILLIGRAM
     Route: 048
     Dates: start: 20231225, end: 20231227
  9. LENVATINIB MESYLATE [Suspect]
     Active Substance: LENVATINIB MESYLATE
     Dosage: 10 MILLIGRAM
     Route: 048
     Dates: start: 20240125
  10. KYTRIL [Concomitant]
     Active Substance: GRANISETRON HYDROCHLORIDE
     Indication: Prophylaxis
     Dosage: 2 MILLIGRAM, QD
     Route: 048
     Dates: start: 20231206, end: 20231211

REACTIONS (12)
  - Malaise [Recovered/Resolved]
  - Decreased appetite [Unknown]
  - Pyrexia [Recovered/Resolved]
  - Malaise [Unknown]
  - Pyrexia [Recovered/Resolved]
  - C-reactive protein increased [Recovered/Resolved]
  - Silent thyroiditis [Recovering/Resolving]
  - Diarrhoea [Unknown]
  - Nausea [Recovered/Resolved]
  - Headache [Not Recovered/Not Resolved]
  - Malaise [Recovered/Resolved]
  - Off label use [Unknown]

NARRATIVE: CASE EVENT DATE: 20231201
